FAERS Safety Report 5109594-4 (Version None)
Quarter: 2006Q3

REPORT INFORMATION
  Report Type: 
  Country: None (occurrence: None)
  Receive Date: 20060918
  Receipt Date: 20060830
  Transmission Date: 20061208
  Serious: Yes (Hospitalization, Other)
  Sender: FDA-Public Use
  Company Number: CA200608006950

PATIENT
  Age: 76 Year
  Sex: Female

DRUGS (13)
  1. FORTEO [Suspect]
     Indication: OSTEOPOROSIS
     Dosage: 20 UG, DAILY (1/D)
     Dates: start: 20050414, end: 20060811
  2. FORTEO [Concomitant]
  3. LOSEC (OMEPRAZOLE) [Concomitant]
  4. HYDROCHLOROTHIAZIDE [Concomitant]
  5. ALTACE [Concomitant]
  6. TYLENOL W/ CODEINE NO. 3 [Concomitant]
  7. PREMARIN [Concomitant]
  8. COLACE (DOCUSATE SODIUM) [Concomitant]
  9. ASCORBIC ACID [Concomitant]
  10. VITAMIN E [Concomitant]
  11. IRON (IRON) [Concomitant]
  12. CALCIUM (CALCIUM) [Concomitant]
  13. GLUCOSAMINE (GLUCOSAMINE) [Concomitant]

REACTIONS (14)
  - ALOPECIA [None]
  - BODY TEMPERATURE INCREASED [None]
  - BONE GRAFT [None]
  - DIABETES MELLITUS [None]
  - FLUSHING [None]
  - HEADACHE [None]
  - INFLUENZA LIKE ILLNESS [None]
  - MALAISE [None]
  - NAUSEA [None]
  - PAIN [None]
  - PAIN IN EXTREMITY [None]
  - PATHOLOGICAL FRACTURE [None]
  - SOMNOLENCE [None]
  - TIBIA FRACTURE [None]
